FAERS Safety Report 9646453 (Version 1)
Quarter: 2013Q4

REPORT INFORMATION
  Report Type: Spontaneous
  Country: GB (occurrence: GB)
  Receive Date: 20131025
  Receipt Date: 20131025
  Transmission Date: 20140711
  Serious: Yes (Other)
  Sender: FDA-Public Use
  Company Number: PHHY2013GB116858

PATIENT
  Age: 14 Year
  Sex: Male
  Weight: 75.9 kg

DRUGS (3)
  1. TOPIRAMATE [Suspect]
     Indication: MIGRAINE
     Dosage: 25 MG, UNK
     Route: 048
     Dates: start: 20130930, end: 20131001
  2. FLIXONASE [Concomitant]
     Indication: SINUSITIS
     Dosage: 1 DF, ONE PUFF. AS REQUIRED.
     Dates: start: 201307
  3. MIGRALEVE [Concomitant]
     Indication: MIGRAINE
     Dosage: 1 DF, AS REQUIRED.
     Route: 048
     Dates: start: 201307

REACTIONS (3)
  - Mobility decreased [Not Recovered/Not Resolved]
  - Dizziness [Not Recovered/Not Resolved]
  - Gait disturbance [Not Recovered/Not Resolved]
